FAERS Safety Report 7928523-9 (Version None)
Quarter: 2011Q4

REPORT INFORMATION
  Report Type: 
  Country: None (occurrence: None)
  Receive Date: 20111118
  Receipt Date: 20111114
  Transmission Date: 20120403
  Serious: Yes (Hospitalization)
  Sender: FDA-Public Use
  Company Number: US-CEPHALON-2011005826

PATIENT
  Sex: Female
  Weight: 56 kg

DRUGS (6)
  1. CYTARABINE [Suspect]
     Route: 037
  2. TRISENOX [Suspect]
     Indication: ACUTE PROMYELOCYTIC LEUKAEMIA
     Route: 042
     Dates: start: 20110727, end: 20110826
  3. TRISENOX [Suspect]
     Route: 042
     Dates: start: 20110912, end: 20111014
  4. CYTARABINE [Suspect]
     Route: 042
  5. TRETINOIN [Suspect]
  6. MITOXANTRONE HYDROCHLORIDE [Suspect]

REACTIONS (2)
  - FEBRILE NEUTROPENIA [None]
  - ESCHERICHIA INFECTION [None]
